FAERS Safety Report 23145820 (Version 2)
Quarter: 2023Q4

REPORT INFORMATION
  Report Type: Report from Study
  Country: IL (occurrence: IL)
  Receive Date: 20231103
  Receipt Date: 20231113
  Transmission Date: 20240110
  Serious: Yes (Death, Hospitalization, Other)
  Sender: FDA-Public Use
  Company Number: IL-GENMAB-2023-02062

PATIENT
  Age: 15 Year
  Sex: Male

DRUGS (3)
  1. EPCORITAMAB [Suspect]
     Active Substance: EPCORITAMAB
     Indication: Burkitt^s lymphoma
     Dosage: CYCLE 1, PRIMING (DAY 1) FREQUENCY: TOTAL
     Route: 058
     Dates: start: 20231015, end: 20231015
  2. EPCORITAMAB [Suspect]
     Active Substance: EPCORITAMAB
     Dosage: CYCLE 1, INTERMEDIATE (DAY 8) FREQUENCY: TOTAL
     Route: 058
     Dates: start: 20231022, end: 20231022
  3. EPCORITAMAB [Suspect]
     Active Substance: EPCORITAMAB
     Dosage: CYCLE 1, FULL DOSE (DAY 15) FREQUENCY: TOTAL
     Route: 058
     Dates: start: 20231029, end: 20231029

REACTIONS (4)
  - Disease progression [Fatal]
  - Depressed level of consciousness [Not Recovered/Not Resolved]
  - Hypotension [Not Recovered/Not Resolved]
  - Pyrexia [Not Recovered/Not Resolved]

NARRATIVE: CASE EVENT DATE: 20231030
